FAERS Safety Report 14368692 (Version 2)
Quarter: 2018Q1

REPORT INFORMATION
  Report Type: Spontaneous
  Country: US (occurrence: US)
  Receive Date: 20180109
  Receipt Date: 20180110
  Transmission Date: 20180509
  Serious: No
  Sender: FDA-Public Use
  Company Number: US-PFIZER INC-2017516563

PATIENT
  Age: 57 Year
  Sex: Female
  Weight: 63.28 kg

DRUGS (1)
  1. SERTRALINE HCL [Suspect]
     Active Substance: SERTRALINE HYDROCHLORIDE
     Dosage: UNK (TRIED THE GENERIC 3 TIMES)

REACTIONS (1)
  - Drug ineffective [Unknown]
